FAERS Safety Report 9383054 (Version 1)
Quarter: 2013Q3

REPORT INFORMATION
  Report Type: Report from Study
  Country: CN (occurrence: CN)
  Receive Date: 20130704
  Receipt Date: 20130704
  Transmission Date: 20140515
  Serious: Yes (Death, Other)
  Sender: FDA-Public Use
  Company Number: CN-ROCHE-1243273

PATIENT
  Sex: 0

DRUGS (8)
  1. MYCOPHENOLATE MOFETIL [Suspect]
     Indication: PROPHYLAXIS AGAINST GRAFT VERSUS HOST DISEASE
     Route: 065
  2. CYCLOPHOSPHAMIDE [Suspect]
     Indication: PROPHYLAXIS AGAINST TRANSPLANT REJECTION
     Dosage: 50 MG/KG/DAY OR 300 MG/M2/DAY, FOR CONSECUTIVE 4 DAYS
     Route: 065
  3. ANTITHYMOCYTE GLOBULIN [Suspect]
     Indication: PROPHYLAXIS AGAINST TRANSPLANT REJECTION
     Dosage: RABBIT ANTI-HUMAN THYMOCYTE IMMUNOGLOBULIN WAS USED IN 19 CASES WITH DOSE OF 2.5 MG/KG-1/-1DAY, ANTI
     Route: 065
  4. FLUDARABINE PHOSPHATE [Suspect]
     Indication: PROPHYLAXIS AGAINST TRANSPLANT REJECTION
     Dosage: 30 MG/M2/DAY FOR CONSECUTIVE 4 DAYS
     Route: 065
  5. BUSULFAN [Suspect]
     Indication: PROPHYLAXIS AGAINST TRANSPLANT REJECTION
     Route: 065
  6. CYCLOSPORINE [Suspect]
     Indication: PROPHYLAXIS AGAINST GRAFT VERSUS HOST DISEASE
     Route: 065
  7. METHOTREXATE [Suspect]
     Indication: PROPHYLAXIS AGAINST GRAFT VERSUS HOST DISEASE
     Route: 065
  8. TACROLIMUS [Suspect]
     Indication: PROPHYLAXIS AGAINST GRAFT VERSUS HOST DISEASE
     Route: 065

REACTIONS (12)
  - Septic shock [Fatal]
  - Post transplant lymphoproliferative disorder [Fatal]
  - Fungal infection [Fatal]
  - Gastrointestinal infection [Fatal]
  - Pericardial effusion [Fatal]
  - Infectious pleural effusion [Fatal]
  - Herpes simplex meningoencephalitis [Unknown]
  - Herpes simplex meningoencephalitis [Unknown]
  - Hepatitis viral [Unknown]
  - Epstein-Barr virus infection [Unknown]
  - Cytomegalovirus infection [Unknown]
  - Human herpesvirus 6 infection [Unknown]
